FAERS Safety Report 5622337-0 (Version None)
Quarter: 2008Q1

REPORT INFORMATION
  Report Type: 
  Country: None (occurrence: None)
  Receive Date: 20080206
  Receipt Date: 20080122
  Transmission Date: 20080703
  Serious: Yes (Death)
  Sender: FDA-Public Use
  Company Number: US022062

PATIENT
  Age: 68 Year
  Sex: Male

DRUGS (6)
  1. TRISENOX [Suspect]
     Indication: ACUTE PROMYELOCYTIC LEUKAEMIA
     Dosage: 8.1 MG QD INTRAVENOUS DRIP
     Route: 042
     Dates: start: 20071228, end: 20071231
  2. IDARUBICIN HCL [Concomitant]
  3. DALTEPARIN SODIUM [Concomitant]
  4. TRANEXAMIC ACID [Concomitant]
  5. FUROSEMIDE [Concomitant]
  6. POTASSIUM REPLACEMENT [Concomitant]

REACTIONS (4)
  - CONDITION AGGRAVATED [None]
  - ELECTROCARDIOGRAM QT PROLONGED [None]
  - LUNG DISORDER [None]
  - RESPIRATORY FAILURE [None]
